FAERS Safety Report 8525245-0 (Version None)
Quarter: 2012Q3

REPORT INFORMATION
  Report Type: 
  Country: None (occurrence: None)
  Receive Date: 20120720
  Receipt Date: 20120717
  Transmission Date: 20120928
  Serious: No
  Sender: FDA-Public Use
  Company Number: PHEH2011US01388

PATIENT
  Sex: Female

DRUGS (12)
  1. TASIGNA [Suspect]
     Indication: CHRONIC MYELOID LEUKAEMIA
     Dosage: 400 MG, BID
     Route: 048
     Dates: start: 20090119, end: 20120608
  2. SIMVASTATIN [Concomitant]
  3. HYDROCODONE BITARTRATE [Concomitant]
  4. ALLOPURINOL [Concomitant]
  5. POTASSIUM CHLORIDE [Concomitant]
  6. FUROSEMIDE [Concomitant]
  7. OMEPRAZOLE [Concomitant]
  8. LAMOTRIGINE [Concomitant]
  9. CARAFATE [Concomitant]
  10. TASIGNA [Suspect]
     Dosage: 400 MG, BID
     Route: 048
     Dates: start: 20120714
  11. HYOSCYAMINE [Concomitant]
  12. GABAPENTIN [Concomitant]

REACTIONS (5)
  - HYPOAESTHESIA [None]
  - HAEMATEMESIS [None]
  - OEDEMA PERIPHERAL [None]
  - ABDOMINAL PAIN [None]
  - ABASIA [None]
